FAERS Safety Report 8491324-X (Version None)
Quarter: 2012Q3

REPORT INFORMATION
  Report Type: 
  Country: None (occurrence: None)
  Receive Date: 20120706
  Receipt Date: 20120629
  Transmission Date: 20120928
  Serious: Yes (Other)
  Sender: FDA-Public Use
  Company Number: PHEH2011US07946

PATIENT
  Sex: Male

DRUGS (19)
  1. NEXIUM [Concomitant]
  2. DIOVAN [Concomitant]
     Indication: BLOOD PRESSURE
  3. TERAZOSIN HCL [Concomitant]
     Indication: PROSTATE CANCER
  4. THYROID TAB [Concomitant]
  5. SANDOSTATIN LAR [Suspect]
     Dosage: 30 MG, EVERY 3 WEEKS
     Route: 030
  6. NORCO [Concomitant]
  7. SANDOSTATIN LAR [Suspect]
     Indication: NEOPLASM MALIGNANT
     Dosage: 10 MG, UNK
  8. SANDOSTATIN LAR [Suspect]
     Dosage: 20 MG, QW2
     Dates: start: 20020101
  9. LYRICA [Concomitant]
     Indication: PAIN IN EXTREMITY
  10. PROZAC [Concomitant]
     Indication: DEPRESSION
  11. LANTUS [Concomitant]
     Indication: DIABETES MELLITUS
  12. SANDOSTATIN LAR [Suspect]
     Dosage: 30 MG, QW3
  13. SANDOSTATIN LAR [Suspect]
  14. LIPITOR [Concomitant]
  15. NEXIUM [Concomitant]
  16. METOPROLOL [Concomitant]
  17. GLIPIZIDE [Concomitant]
  18. ATORVASTATIN [Concomitant]
  19. CLOBETASOL PROPIONATE [Concomitant]

REACTIONS (9)
  - TERMINAL STATE [None]
  - BACK INJURY [None]
  - HEPATIC NEOPLASM MALIGNANT [None]
  - UNDERDOSE [None]
  - CARDIAC DISORDER [None]
  - FALL [None]
  - NEEDLE ISSUE [None]
  - NEOPLASM PROGRESSION [None]
  - DIABETES MELLITUS [None]
